FAERS Safety Report 6201403-5 (Version None)
Quarter: 2009Q2

REPORT INFORMATION
  Report Type: 
  Country: None (occurrence: None)
  Receive Date: 20090526
  Receipt Date: 20090519
  Transmission Date: 20091009
  Serious: Yes (Hospitalization)
  Sender: FDA-Public Use
  Company Number: PHHY2008MX20967

PATIENT
  Age: 71 Year
  Sex: Female

DRUGS (2)
  1. ACLASTA [Suspect]
     Indication: OSTEOPOROSIS
     Dosage: 5 MG / 100 ML, ANNUALLY
     Route: 042
     Dates: start: 20071001, end: 20071001
  2. ACLASTA [Suspect]
     Dosage: 5 MG / 100 ML, ANNUALLY
     Route: 042
     Dates: start: 20081001, end: 20081001

REACTIONS (1)
  - CATARACT OPERATION [None]
